FAERS Safety Report 17397487 (Version 1)
Quarter: 2020Q1

REPORT INFORMATION
  Report Type: Spontaneous
  Country: US (occurrence: US)
  Receive Date: 20200210
  Receipt Date: 20200210
  Transmission Date: 20200409
  Serious: Yes (Other)
  Sender: FDA-Public Use
  Company Number: US-PFIZER INC-2020056562

PATIENT
  Age: 44 Year
  Sex: Female
  Weight: 58.97 kg

DRUGS (1)
  1. XANAX [Suspect]
     Active Substance: ALPRAZOLAM
     Indication: ANXIETY
     Dosage: 1 MG, 3X/DAY
     Route: 048
     Dates: start: 2011

REACTIONS (8)
  - Drug dependence [Unknown]
  - Paranoia [Unknown]
  - Fear of death [Unknown]
  - Trismus [Unknown]
  - Seizure [Unknown]
  - Crying [Unknown]
  - Hyperhidrosis [Unknown]
  - Fear [Unknown]
